FAERS Safety Report 23874203 (Version 2)
Quarter: 2024Q2

REPORT INFORMATION
  Report Type: Other
  Country: RU (occurrence: None)
  Receive Date: 20240520
  Receipt Date: 20240524
  Transmission Date: 20240716
  Serious: Yes (Other)
  Sender: FDA-Public Use
  Company Number: RU-ROCHE-3563669

PATIENT
  Sex: Female

DRUGS (3)
  1. GLOFITAMAB [Suspect]
     Active Substance: GLOFITAMAB
     Indication: Diffuse large B-cell lymphoma
     Route: 042
     Dates: start: 20240306
  2. CEFOPERAZONE\SULBACTAM [Concomitant]
     Active Substance: CEFOPERAZONE\SULBACTAM
  3. VORICONAZOLE [Concomitant]
     Active Substance: VORICONAZOLE

REACTIONS (3)
  - Bronchopulmonary aspergillosis [Recovered/Resolved]
  - Pneumonia bacterial [Recovered/Resolved]
  - Sinusitis [Recovered/Resolved]
